FAERS Safety Report 23697895 (Version 2)
Quarter: 2024Q2

REPORT INFORMATION
  Report Type: Spontaneous
  Country: FR (occurrence: FR)
  Receive Date: 20240402
  Receipt Date: 20240405
  Transmission Date: 20240716
  Serious: Yes (Other)
  Sender: FDA-Public Use
  Company Number: FR-PFIZER INC-PV202400032794

PATIENT
  Age: 58 Year
  Sex: Male
  Weight: 70 kg

DRUGS (1)
  1. IRINOTECAN [Suspect]
     Active Substance: IRINOTECAN
     Indication: Adenocarcinoma of colon
     Dosage: 180 MG/M2, CYCLIC
     Route: 042
     Dates: start: 20240201

REACTIONS (9)
  - Neurological symptom [Recovering/Resolving]
  - Motor dysfunction [Recovering/Resolving]
  - Skin toxicity [Recovering/Resolving]
  - Skin burning sensation [Recovering/Resolving]
  - Nervous system disorder [Unknown]
  - Muscular weakness [Unknown]
  - Back pain [Unknown]
  - Mastication disorder [Unknown]
  - Eating disorder [Unknown]

NARRATIVE: CASE EVENT DATE: 20240101
